FAERS Safety Report 5996272-2 (Version None)
Quarter: 2008Q4

REPORT INFORMATION
  Report Type: 
  Country: None (occurrence: None)
  Receive Date: 20081212
  Receipt Date: 20081006
  Transmission Date: 20090506
  Serious: No
  Sender: FDA-Public Use
  Company Number: US-ABBOTT-08P-163-0480079-00

PATIENT
  Sex: Male
  Weight: 110.78 kg

DRUGS (2)
  1. HUMIRA [Suspect]
     Indication: PSORIASIS
     Route: 058
  2. LISINOP/HCTZ [Concomitant]
     Indication: HYPERTENSION

REACTIONS (3)
  - OCULAR HYPERAEMIA [None]
  - PRURITUS [None]
  - RASH [None]
